FAERS Safety Report 6727712-9 (Version None)
Quarter: 2010Q2

REPORT INFORMATION
  Report Type: 
  Country: None (occurrence: None)
  Receive Date: 20100514
  Receipt Date: 20100514
  Transmission Date: 20101027
  Serious: No
  Sender: FDA-Public Use
  Company Number: None

PATIENT
  Sex: Female
  Weight: 83.0083 kg

DRUGS (1)
  1. BETADINE [Suspect]
     Indication: CATARACT OPERATION
     Dates: start: 20090820, end: 20090820

REACTIONS (4)
  - CHEMICAL POISONING [None]
  - HYPERSENSITIVITY [None]
  - LUNG DISORDER [None]
  - POST PROCEDURAL DRAINAGE [None]
